FAERS Safety Report 9617230 (Version 1)
Quarter: 2013Q4

REPORT INFORMATION
  Report Type: Spontaneous
  Country: IT (occurrence: IT)
  Receive Date: 20131011
  Receipt Date: 20131011
  Transmission Date: 20140711
  Serious: Yes (Life-Threatening)
  Sender: FDA-Public Use
  Company Number: IT-TEVA-436289ISR

PATIENT
  Age: 55 Year
  Sex: Male

DRUGS (6)
  1. VINBLASTINA TEVA [Suspect]
     Indication: BLADDER CANCER STAGE IV
     Route: 042
     Dates: start: 20130524, end: 20130916
  2. METHOTREXATE [Suspect]
     Indication: BLADDER CANCER STAGE IV
     Dosage: 54MG, CYCLICAL
     Route: 042
     Dates: start: 20130524, end: 20130916
  3. ADRIBLASTINA [Suspect]
     Indication: BLADDER CANCER STAGE IV
     Dosage: 54MG, CYCLICAL, POWDER FOR INJECTABLE SOLUTION
     Route: 042
     Dates: start: 20130611, end: 20130910
  4. CISPLATINO SANDOZ [Suspect]
     Indication: BLADDER CANCER STAGE IV
     Dosage: 120MG, CYCLICAL, CONCENTRATE FOR SOLUTION FOR INTRAVENOUS INFUSION
     Route: 042
     Dates: start: 20130611, end: 20130903
  5. ZOFRAN [Concomitant]
     Indication: PREMEDICATION
     Dosage: 8 MILLIGRAM DAILY;
     Route: 042
     Dates: start: 20130524, end: 20130916
  6. DESAMETASONE FOSFATO HOSPIRA [Concomitant]
     Indication: PREMEDICATION
     Dosage: 8 MILLIGRAM DAILY;
     Route: 042
     Dates: start: 20130611, end: 20130903

REACTIONS (1)
  - Neutropenia [Recovered/Resolved]
